FAERS Safety Report 9498309 (Version 1)
Quarter: 2013Q3

REPORT INFORMATION
  Report Type: Spontaneous
  Country: AU (occurrence: AU)
  Receive Date: 20130904
  Receipt Date: 20130904
  Transmission Date: 20140515
  Serious: Yes (Other)
  Sender: FDA-Public Use
  Company Number: AU-PFIZER INC-2013252619

PATIENT
  Age: 82 Year
  Sex: Female

DRUGS (4)
  1. LIPITOR [Suspect]
     Indication: BLOOD CHOLESTEROL
     Dosage: 20 MG, DAILY
     Route: 048
  2. FISH OIL [Concomitant]
     Dosage: UNK
  3. XALATAN [Concomitant]
     Dosage: UNK
  4. COLOXYL [Concomitant]
     Dosage: UNK

REACTIONS (1)
  - Vaginal haemorrhage [Not Recovered/Not Resolved]
